FAERS Safety Report 4958568-2 (Version None)
Quarter: 2006Q1

REPORT INFORMATION
  Report Type: 
  Country: None (occurrence: None)
  Receive Date: 20060127
  Receipt Date: 20050804
  Transmission Date: 20060701
  Serious: Yes (Death)
  Sender: FDA-Public Use
  Company Number: 05-08-1380

PATIENT
  Age: 62 Year
  Sex: Female

DRUGS (6)
  1. CLOZAPINE [Suspect]
     Indication: PARANOIA
     Dosage: 150-900MG, QD, QD, ORAL
     Route: 048
     Dates: start: 19990201, end: 20050601
  2. CLOZAPINE [Suspect]
     Indication: SCHIZOPHRENIA
     Dosage: 150-900MG, QD, QD, ORAL
     Route: 048
     Dates: start: 19990201, end: 20050601
  3. DOXEPIN [Suspect]
     Indication: DEPRESSION
  4. FLUPHENAZINE HCL [Concomitant]
  5. CLONAZEPAM [Concomitant]
  6. TRIHEXYPHENIDYL HYDROCHLORIDE [Concomitant]

REACTIONS (1)
  - UNEVALUABLE EVENT [None]
